FAERS Safety Report 18476740 (Version 2)
Quarter: 2021Q1

REPORT INFORMATION
  Report Type: Spontaneous
  Country: JP (occurrence: JP)
  Receive Date: 20201107
  Receipt Date: 20210210
  Transmission Date: 20210419
  Serious: Yes (Other)
  Sender: FDA-Public Use
  Company Number: JP-TAKEDA-2020TUS048001

PATIENT
  Age: 73 Year
  Sex: Female
  Weight: 38 kg

DRUGS (13)
  1. AZOSEMIDE [Concomitant]
     Active Substance: AZOSEMIDE
     Indication: RENAL FAILURE
     Dosage: 60 MILLIGRAM
     Route: 065
     Dates: start: 20071111
  2. LANTHANUM CARBONATE OD [Suspect]
     Active Substance: LANTHANUM CARBONATE
     Indication: HYPERPHOSPHATAEMIA
     Dosage: 750 MILLIGRAM, QD
     Route: 048
     Dates: start: 20190603, end: 20200129
  3. BISOPROLOL [Concomitant]
     Active Substance: BISOPROLOL
     Indication: HYPERTENSION
     Dosage: 0.625 MILLIGRAM
     Route: 065
     Dates: start: 20170328
  4. FOSRENOL [Suspect]
     Active Substance: LANTHANUM CARBONATE
     Indication: HYPERPHOSPHATAEMIA
     Dosage: 750 MILLIGRAM, QD
     Route: 048
     Dates: start: 20170828, end: 20190602
  5. ISOSORBIDE MONONITRATE. [Concomitant]
     Active Substance: ISOSORBIDE MONONITRATE
     Indication: ANGINA PECTORIS
     Dosage: 20 MILLIGRAM
     Route: 065
     Dates: start: 20130318
  6. CALCITRIOL. [Concomitant]
     Active Substance: CALCITRIOL
     Indication: CHRONIC KIDNEY DISEASE
     Dosage: UNK
     Route: 065
     Dates: start: 20091202
  7. PITAVASTATIN. [Concomitant]
     Active Substance: PITAVASTATIN CALCIUM
     Dosage: UNK
     Route: 065
     Dates: start: 20170612, end: 20200713
  8. ESOMEPRAZOLE. [Concomitant]
     Active Substance: ESOMEPRAZOLE MAGNESIUM
     Indication: GASTRIC ULCER
     Dosage: UNK
     Route: 065
     Dates: start: 20120313
  9. REBAMIPIDE [Concomitant]
     Active Substance: REBAMIPIDE
     Indication: GASTRITIS
     Dosage: 100 MILLIGRAM
     Route: 065
     Dates: start: 20130318
  10. RENAGEL [Concomitant]
     Active Substance: SEVELAMER HYDROCHLORIDE
     Dosage: UNK
     Route: 065
     Dates: start: 20190205
  11. FOSRENOL [Suspect]
     Active Substance: LANTHANUM CARBONATE
     Dosage: 250 MILLIGRAM, QD
     Route: 048
     Dates: start: 20170828, end: 20190602
  12. LANTHANUM CARBONATE OD [Suspect]
     Active Substance: LANTHANUM CARBONATE
     Dosage: 1500 MILLIGRAM, QD
     Route: 048
     Dates: start: 20200130, end: 20200420
  13. TANKARU [Concomitant]
     Dosage: 500 MILLIGRAM
     Route: 065
     Dates: start: 20140819

REACTIONS (6)
  - Diverticulum intestinal [Unknown]
  - C-reactive protein increased [Unknown]
  - Product residue present [Not Recovered/Not Resolved]
  - Diverticulitis [Recovering/Resolving]
  - Enterocolitis [Recovering/Resolving]
  - Diverticulum intestinal haemorrhagic [Recovering/Resolving]

NARRATIVE: CASE EVENT DATE: 20181112
